FAERS Safety Report 5694359-5 (Version None)
Quarter: 2008Q2

REPORT INFORMATION
  Report Type: 
  Country: None (occurrence: None)
  Receive Date: 20080402
  Receipt Date: 20080319
  Transmission Date: 20081010
  Serious: Yes (Hospitalization)
  Sender: FDA-Public Use
  Company Number: MEDI-0006100

PATIENT
  Age: 2 Month
  Sex: Female
  Weight: 3 kg

DRUGS (4)
  1. SYNAGIS [Suspect]
     Indication: PREMATURE BABY
     Dosage: 24 MG/KG, 1 IN 1 M, INTRAMUSCULAR
     Route: 030
     Dates: start: 20070916, end: 20071012
  2. FUROSEMIDE [Concomitant]
  3. SPIRONOLACTONE [Concomitant]
  4. FERRIC PYROPHOSPHATE SOLUBLE [Concomitant]

REACTIONS (1)
  - IDIOPATHIC THROMBOCYTOPENIC PURPURA [None]
